FAERS Safety Report 15307827 (Version 1)
Quarter: 2018Q3

REPORT INFORMATION
  Report Type: Report from Study
  Country: US (occurrence: US)
  Receive Date: 20180822
  Receipt Date: 20180822
  Transmission Date: 20181010
  Serious: Yes (Hospitalization)
  Sender: FDA-Public Use
  Company Number: US-BAYER-2018-154862

PATIENT
  Age: 71 Year
  Sex: Female
  Weight: 82.99 kg

DRUGS (5)
  1. ADEMPAS [Suspect]
     Active Substance: RIOCIGUAT
     Indication: PULMONARY ARTERIAL HYPERTENSION
     Dosage: 2.5 MG, TID
     Route: 048
  2. ADEMPAS [Suspect]
     Active Substance: RIOCIGUAT
     Indication: PULMONARY ARTERIAL HYPERTENSION
     Dosage: UNK
     Route: 048
     Dates: start: 20151228
  3. OPSUMIT [Concomitant]
     Active Substance: MACITENTAN
     Dosage: UNK
  4. OFEV [Concomitant]
     Active Substance: NINTEDANIB
     Dosage: UNK
  5. VELETRI [Concomitant]
     Active Substance: EPOPROSTENOL
     Dosage: UNK

REACTIONS (2)
  - Hospitalisation [Unknown]
  - Respiratory rate increased [Unknown]
